FAERS Safety Report 7669298-0 (Version None)
Quarter: 2011Q3

REPORT INFORMATION
  Report Type: 
  Country: None (occurrence: None)
  Receive Date: 20110808
  Receipt Date: 20110729
  Transmission Date: 20111222
  Serious: Yes (Hospitalization)
  Sender: FDA-Public Use
  Company Number: PHHY2011US69724

PATIENT
  Age: 21 Year
  Sex: Female
  Weight: 48.526 kg

DRUGS (2)
  1. TOBI [Suspect]
     Dosage: 300 MG, TWICE A DAY 28 DAYS ON AND 28 DAYS OFF
     Dates: start: 20110411
  2. PULMOZYME [Concomitant]

REACTIONS (2)
  - INFECTIVE PULMONARY EXACERBATION OF CYSTIC FIBROSIS [None]
  - UPPER RESPIRATORY TRACT INFECTION [None]
